FAERS Safety Report 8315211-2 (Version None)
Quarter: 2012Q2

REPORT INFORMATION
  Report Type: 
  Country: None (occurrence: None)
  Receive Date: 20120426
  Receipt Date: 20120418
  Transmission Date: 20120825
  Serious: Yes (Other)
  Sender: FDA-Public Use
  Company Number: DE-BRISTOL-MYERS SQUIBB COMPANY-16536039

PATIENT
  Age: 60 Year
  Sex: Female

DRUGS (3)
  1. BUPROPION HYDROCHLORIDE [Suspect]
     Dosage: TRADE: ELONTIL
  2. LITHIUM CARBONATE [Suspect]
  3. ABILIFY [Suspect]

REACTIONS (1)
  - THROMBOSIS [None]
